FAERS Safety Report 14303298 (Version 1)
Quarter: 2017Q4

REPORT INFORMATION
  Report Type: Spontaneous
  Country: US (occurrence: US)
  Receive Date: 20171219
  Receipt Date: 20171219
  Transmission Date: 20180321
  Serious: Yes (Other)
  Sender: FDA-Public Use
  Company Number: US-OTSUKA-19411263

PATIENT
  Age: 16 Year
  Sex: Female

DRUGS (2)
  1. ABILIFY [Suspect]
     Active Substance: ARIPIPRAZOLE
     Indication: AUTISM SPECTRUM DISORDER
  2. ABILIFY [Suspect]
     Active Substance: ARIPIPRAZOLE
     Indication: ATTENTION DEFICIT/HYPERACTIVITY DISORDER
     Dosage: STARTED AT 5MG, INC TO 7.5MG, INTERRUPTED AND REDUCED BACK TO 5MG
     Route: 065

REACTIONS (3)
  - Abnormal behaviour [Recovering/Resolving]
  - Off label use [Unknown]
  - Suicidal ideation [Recovering/Resolving]
